FAERS Safety Report 23400383 (Version 1)
Quarter: 2024Q1

REPORT INFORMATION
  Report Type: Spontaneous
  Country: CN (occurrence: CN)
  Receive Date: 20240115
  Receipt Date: 20240115
  Transmission Date: 20240410
  Serious: Yes (Other)
  Sender: FDA-Public Use
  Company Number: CN-PFIZER INC-PV202400002916

PATIENT
  Age: 67 Year
  Sex: Female

DRUGS (4)
  1. AVIBACTAM SODIUM [Suspect]
     Active Substance: AVIBACTAM SODIUM
     Indication: Anti-infective therapy
     Dosage: TIME INTERVAL: 0.33333333 DAYS: 2.5 G, 3X/DAY
     Route: 065
  2. CIPROFLOXACIN [Suspect]
     Active Substance: CIPROFLOXACIN
     Indication: Anti-infective therapy
     Dosage: TIME INTERVAL: 0.33333333 DAYS: 0.4 G, 3X/DAY
     Route: 041
  3. FLUCONAZOLE [Suspect]
     Active Substance: FLUCONAZOLE
     Indication: Anti-infective therapy
     Dosage: 0.4 G, 1X/DAY
     Route: 041
  4. TEICOPLANIN [Suspect]
     Active Substance: TEICOPLANIN
     Indication: Anti-infective therapy
     Dosage: 0.2 QD VIA MICROPUMP
     Route: 065

REACTIONS (1)
  - Sputum increased [Unknown]
